FAERS Safety Report 7001925-3 (Version None)
Quarter: 2010Q3

REPORT INFORMATION
  Report Type: 
  Country: None (occurrence: None)
  Receive Date: 20100920
  Receipt Date: 20100915
  Transmission Date: 20110219
  Serious: Yes (Other)
  Sender: FDA-Public Use
  Company Number: A0808553A

PATIENT
  Age: 61 Year
  Sex: Female

DRUGS (2)
  1. PROMACTA [Suspect]
     Indication: THROMBOCYTOPENIC PURPURA
     Dosage: 50MG PER DAY
     Route: 048
     Dates: start: 20090922, end: 20100615
  2. CORTICOSTEROIDS [Concomitant]
     Indication: IDIOPATHIC THROMBOCYTOPENIC PURPURA
     Dates: start: 20081001

REACTIONS (6)
  - ACNE [None]
  - BEDRIDDEN [None]
  - BLINDNESS [None]
  - CERVIX CARCINOMA [None]
  - HAEMORRHAGE [None]
  - MALIGNANT NEOPLASM PROGRESSION [None]
